FAERS Safety Report 9426897 (Version 2)
Quarter: 2013Q4

REPORT INFORMATION
  Report Type: Spontaneous
  Country: JP (occurrence: JP)
  Receive Date: 20130730
  Receipt Date: 20131127
  Transmission Date: 20140711
  Serious: Yes (Death, Other)
  Sender: FDA-Public Use
  Company Number: JP-ASTELLAS-2013US007941

PATIENT
  Age: 74 Year
  Sex: Female

DRUGS (11)
  1. AMBISOME [Suspect]
     Indication: MENINGITIS CRYPTOCOCCAL
     Dosage: 150 MG, UID/QD
     Route: 041
     Dates: start: 20130608, end: 20130614
  2. PROGRAF [Concomitant]
     Indication: PRODUCT USED FOR UNKNOWN INDICATION
     Dosage: UNK
     Dates: end: 20130612
  3. ANCOTIL [Concomitant]
     Indication: MENINGITIS CRYPTOCOCCAL
     Dosage: 100 MG/KG, UID/QD
     Route: 065
     Dates: start: 20130608, end: 20130612
  4. OXYGEN [Concomitant]
     Indication: PRODUCT USED FOR UNKNOWN INDICATION
     Dosage: UNK
     Route: 065
  5. PREDNISOLONE [Concomitant]
     Indication: RHEUMATOID VASCULITIS
     Dosage: UNK
     Route: 048
     Dates: end: 20130615
  6. PREDNISOLONE [Concomitant]
     Indication: INTERSTITIAL LUNG DISEASE
  7. OMEPRAL                            /00661201/ [Concomitant]
     Indication: PRODUCT USED FOR UNKNOWN INDICATION
     Dosage: UNK
     Route: 065
     Dates: end: 20130612
  8. BAKTAR [Concomitant]
     Indication: PRODUCT USED FOR UNKNOWN INDICATION
     Dosage: UNK
     Route: 065
     Dates: end: 20130612
  9. SOL-MELCORT [Concomitant]
     Indication: PRODUCT USED FOR UNKNOWN INDICATION
     Dosage: UNK
     Route: 065
     Dates: start: 20130611, end: 20130613
  10. IMMUNOSUPPRESSANTS [Concomitant]
     Indication: RHEUMATOID VASCULITIS
     Dosage: UNK
     Route: 048
  11. IMMUNOSUPPRESSANTS [Concomitant]
     Indication: INTERSTITIAL LUNG DISEASE

REACTIONS (2)
  - Interstitial lung disease [Fatal]
  - Renal failure [Unknown]
